FAERS Safety Report 11357744 (Version 3)
Quarter: 2015Q3

REPORT INFORMATION
  Report Type: Spontaneous
  Country: US (occurrence: US)
  Receive Date: 20150803
  Receipt Date: 20150903
  Transmission Date: 20151125
  Serious: No
  Sender: FDA-Public Use
  Company Number: US-ELI_LILLY_AND_COMPANY-US201203006111

PATIENT
  Age: 40 Year
  Sex: Male

DRUGS (3)
  1. ZYPREXA [Suspect]
     Active Substance: OLANZAPINE
     Indication: GENERALISED ANXIETY DISORDER
     Dosage: 10 MG, UNKNOWN
  2. LITHIUM                            /00033701/ [Concomitant]
     Indication: GENERALISED ANXIETY DISORDER
     Dosage: UNK, UNKNOWN
  3. CYMBALTA [Suspect]
     Active Substance: DULOXETINE HYDROCHLORIDE
     Indication: GENERALISED ANXIETY DISORDER
     Dosage: 60 MG, UNKNOWN

REACTIONS (2)
  - Blood testosterone decreased [Not Recovered/Not Resolved]
  - Off label use [Not Recovered/Not Resolved]
